FAERS Safety Report 4840409-5 (Version None)
Quarter: 2005Q4

REPORT INFORMATION
  Report Type: 
  Country: None (occurrence: None)
  Receive Date: 20051024
  Receipt Date: 20050929
  Transmission Date: 20060501
  Serious: Yes (Hospitalization)
  Sender: FDA-Public Use
  Company Number: 216951

PATIENT
  Age: 14 Year
  Sex: Male
  Weight: 64.7 kg

DRUGS (14)
  1. XOLAIR [Suspect]
     Indication: ASTHMA
     Dosage: 300 MG,Q2W,SUBCUTANEOUS
     Route: 058
     Dates: start: 20041022, end: 20050729
  2. MAXAIR [Concomitant]
  3. XOPENEX [Concomitant]
  4. IPRATROPIUM BROMIDE [Concomitant]
  5. ADVAIR (SALMETEROL XINAFOATE, FLUTICASONE PROPIONATE) [Concomitant]
  6. PULMICORT [Concomitant]
  7. SINGULAIR [Concomitant]
  8. PREVACID [Concomitant]
  9. NASONEX [Concomitant]
  10. AZELASTINE (AZELASTINE HYDROCHLORIDE) [Concomitant]
  11. EES (ERYTHROMYCIN ETHYLSUCCINATE) [Concomitant]
  12. BENADRYL [Concomitant]
  13. MAXALT [Concomitant]
  14. ALLEGRA [Concomitant]

REACTIONS (3)
  - HYPERSENSITIVITY [None]
  - URTICARIA [None]
  - WHEEZING [None]
